FAERS Safety Report 9146668 (Version 1)
Quarter: 2013Q1

REPORT INFORMATION
  Report Type: Spontaneous
  Country: US (occurrence: US)
  Receive Date: 20130307
  Receipt Date: 20130307
  Transmission Date: 20140127
  Serious: Yes (Life-Threatening, Hospitalization)
  Sender: FDA-Public Use
  Company Number: US-JNJFOC-001-0184-970013

PATIENT
  Age: 32 Year
  Sex: Female

DRUGS (5)
  1. BENADRYL [Suspect]
     Indication: ANAPHYLACTIC REACTION
     Dosage: FREQUENCY TEXT: 25 MG ONCE
     Route: 042
  2. AMOXIL [Concomitant]
  3. SOLU-MEDROL [Concomitant]
  4. SUS-PHRINE [Concomitant]
  5. SODIUM CHLORIDE [Concomitant]

REACTIONS (10)
  - Loss of consciousness [Recovered/Resolved]
  - Convulsion [Recovered/Resolved]
  - Restlessness [Recovered/Resolved]
  - Tremor [Recovered/Resolved]
  - Tachycardia [Recovered/Resolved]
  - Hypotension [Recovered/Resolved]
  - Nausea [Recovered/Resolved]
  - Vomiting [Recovered/Resolved]
  - Headache [Recovered/Resolved]
  - Confusional state [Recovered/Resolved]
